FAERS Safety Report 16270280 (Version 1)
Quarter: 2019Q2

REPORT INFORMATION
  Report Type: Spontaneous
  Country: US (occurrence: US)
  Receive Date: 20190329
  Receipt Date: 20190329
  Transmission Date: 20190711
  Serious: Yes (Hospitalization)
  Sender: FDA-Public Use
  Company Number: None

PATIENT
  Sex: Female

DRUGS (1)
  1. AFINITOR [Suspect]
     Active Substance: EVEROLIMUS
     Indication: BREAST CANCER
     Route: 048
     Dates: start: 20181012

REACTIONS (7)
  - Weight decreased [None]
  - Fatigue [None]
  - Vomiting [None]
  - Arthralgia [None]
  - Pneumonia [None]
  - Nephrolithiasis [None]
  - Nausea [None]
